FAERS Safety Report 7073301-9 (Version None)
Quarter: 2010Q4

REPORT INFORMATION
  Report Type: 
  Country: None (occurrence: None)
  Receive Date: 20101029
  Receipt Date: 20100723
  Transmission Date: 20110411
  Serious: No
  Sender: FDA-Public Use
  Company Number: A0861237A

PATIENT
  Age: 53 Year
  Sex: Female

DRUGS (7)
  1. ADVAIR DISKUS 100/50 [Suspect]
     Indication: PRODUCT USED FOR UNKNOWN INDICATION
     Route: 055
     Dates: start: 20091101
  2. LIPITOR [Concomitant]
  3. NASONEX [Concomitant]
  4. SINGULAIR [Concomitant]
  5. SYNTHROID [Concomitant]
  6. JANUVIA [Concomitant]
  7. METFORMIN [Concomitant]

REACTIONS (3)
  - DRUG INEFFECTIVE [None]
  - INHALATION THERAPY [None]
  - PRODUCT QUALITY ISSUE [None]
